FAERS Safety Report 20152124 (Version 1)
Quarter: 2021Q4

REPORT INFORMATION
  Report Type: Spontaneous
  Country: US (occurrence: None)
  Receive Date: 20211205
  Receipt Date: 20211205
  Transmission Date: 20220303
  Serious: Yes (Other)
  Sender: FDA-Public Use
  Company Number: None

PATIENT
  Age: 68 Year
  Sex: Female
  Weight: 98.1 kg

DRUGS (3)
  1. FLUTICASONE PROPIONATE\SALMETEROL XINAFOATE [Suspect]
     Active Substance: FLUTICASONE PROPIONATE\SALMETEROL XINAFOATE
     Indication: Bronchospasm
     Dosage: OTHER STRENGTH : MCG;?OTHER QUANTITY : 1 INHALATION(S);?FREQUENCY : TWICE A DAY;?
     Route: 055
     Dates: start: 20211105, end: 20211205
  2. ESTRADIOL PATCH [Concomitant]
  3. VITAMINS [Concomitant]
     Active Substance: VITAMINS

REACTIONS (4)
  - Heart rate increased [None]
  - Heart rate irregular [None]
  - Palpitations [None]
  - Dyspnoea [None]

NARRATIVE: CASE EVENT DATE: 20211105
